FAERS Safety Report 9520391 (Version 2)
Quarter: 2013Q4

REPORT INFORMATION
  Report Type: Spontaneous
  Country: RU (occurrence: RU)
  Receive Date: 20130912
  Receipt Date: 20131001
  Transmission Date: 20140711
  Serious: Yes (Life-Threatening, Hospitalization, Other)
  Sender: FDA-Public Use
  Company Number: RU-B.I. PHARMACEUTICALS,INC./RIDGEFIELD-2013-BI-28215RZ

PATIENT
  Age: 75 Year
  Sex: Male

DRUGS (7)
  1. MIRAPEX [Suspect]
     Indication: PARKINSON^S DISEASE
     Dosage: 0.75 MG
     Route: 048
     Dates: start: 20130604, end: 20130814
  2. CERAXON [Concomitant]
     Indication: CEREBRAL ARTERIOSCLEROSIS
     Route: 042
  3. ASPIRIN [Concomitant]
     Dosage: 1/4 TABLET IN EVENING
  4. NACOM [Concomitant]
     Dosage: 250 MG
  5. PRONORAN [Concomitant]
     Dosage: 50 MG
  6. ATORIS [Concomitant]
     Dosage: 10 MG
  7. ENAP [Concomitant]
     Dosage: 2.5 MG

REACTIONS (5)
  - Ischaemic stroke [Recovered/Resolved]
  - Thrombocytopenia [Not Recovered/Not Resolved]
  - Haemorrhagic stroke [Recovered/Resolved]
  - Rash [Recovered/Resolved]
  - Haemorrhage [Recovered/Resolved]
